FAERS Safety Report 25422815 (Version 1)
Quarter: 2025Q2

REPORT INFORMATION
  Report Type: Spontaneous
  Country: US (occurrence: None)
  Receive Date: 20250610
  Receipt Date: 20250610
  Transmission Date: 20250717
  Serious: Yes (Life-Threatening, Hospitalization)
  Sender: FDA-CTU
  Company Number: None

PATIENT
  Age: 76 Year
  Sex: Male
  Weight: 114 kg

DRUGS (2)
  1. VANCOMYCIN HYDROCHLORIDE [Suspect]
     Active Substance: VANCOMYCIN HYDROCHLORIDE
     Indication: Infection
     Route: 042
     Dates: start: 20241215, end: 20241215
  2. DILTIAZEM HYDROCHLORIDE [Suspect]
     Active Substance: DILTIAZEM HYDROCHLORIDE
     Indication: Atrial fibrillation
     Route: 042
     Dates: start: 20241215, end: 20241215

REACTIONS (8)
  - Hypotension [None]
  - Rash [None]
  - Muscular weakness [None]
  - Peripheral swelling [None]
  - Erythema [None]
  - Atrial fibrillation [None]
  - Sepsis [None]
  - Blood pressure decreased [None]

NARRATIVE: CASE EVENT DATE: 20241215
